FAERS Safety Report 17195977 (Version 3)
Quarter: 2020Q1

REPORT INFORMATION
  Report Type: Spontaneous
  Country: US (occurrence: US)
  Receive Date: 20191224
  Receipt Date: 20200214
  Transmission Date: 20200409
  Serious: No
  Sender: FDA-Public Use
  Company Number: US-BRISTOL-MYERS SQUIBB COMPANY-BMS-2019-123216

PATIENT
  Age: 61 Year
  Sex: Male

DRUGS (1)
  1. SPRYCEL [Suspect]
     Active Substance: DASATINIB
     Indication: ANKYLOSING SPONDYLITIS
     Dosage: 100 MILLIGRAM, QD
     Route: 048
     Dates: start: 20191122

REACTIONS (4)
  - Intentional product use issue [Unknown]
  - Respiratory tract congestion [Unknown]
  - Erythema [Unknown]
  - Pruritus [Unknown]

NARRATIVE: CASE EVENT DATE: 20191223
